FAERS Safety Report 6172598-7 (Version None)
Quarter: 2009Q2

REPORT INFORMATION
  Report Type: 
  Country: None (occurrence: None)
  Receive Date: 20090428
  Receipt Date: 20090416
  Transmission Date: 20091009
  Serious: Yes (Other)
  Sender: FDA-Public Use
  Company Number: 234149K09USA

PATIENT
  Age: 53 Year
  Sex: Male
  Weight: 86 kg

DRUGS (6)
  1. REBIF [Suspect]
     Indication: MULTIPLE SCLEROSIS
     Dosage: 44 MCG, 3 IN WEEKS, SUBCUTANEOUS
     Route: 058
     Dates: start: 20060101, end: 20090303
  2. LISINOPRIL [Concomitant]
  3. COREG [Concomitant]
  4. ALDACTONE [Concomitant]
  5. ZOCOR (ZOCOR CARDIO ASS) [Concomitant]
  6. PRILOSEC [Concomitant]

REACTIONS (1)
  - PROSTATE CANCER [None]
